FAERS Safety Report 9837707 (Version 1)
Quarter: 2014Q1

REPORT INFORMATION
  Report Type: Spontaneous
  Country: PT (occurrence: PT)
  Receive Date: 20140123
  Receipt Date: 20140123
  Transmission Date: 20141002
  Serious: Yes (Other)
  Sender: FDA-Public Use
  Company Number: PT-ASTELLAS-2014EU000335

PATIENT
  Age: 3 Year
  Sex: Male

DRUGS (5)
  1. TACROLIMUS SYSTEMIC [Suspect]
     Indication: HEART TRANSPLANT
     Dosage: UNK
     Route: 065
  2. MYCOPHENOLATE MOFETIL [Suspect]
     Indication: HEART TRANSPLANT
     Dosage: UNK
     Route: 065
  3. PREDNISOLON /00016201/ [Suspect]
     Indication: HEART TRANSPLANT
     Dosage: UNK
     Route: 065
  4. CO-TRIMOXAZOLE [Concomitant]
     Indication: PNEUMOCYSTIS JIROVECII INFECTION
     Dosage: UNK
     Route: 065
  5. CO-TRIMOXAZOLE [Concomitant]
     Indication: TOXOPLASMOSIS

REACTIONS (2)
  - Neutropenia [Recovered/Resolved]
  - Bone marrow failure [Unknown]
